FAERS Safety Report 5910954-X (Version None)
Quarter: 2008Q4

REPORT INFORMATION
  Report Type: 
  Country: None (occurrence: None)
  Receive Date: 20081003
  Receipt Date: 20081003
  Transmission Date: 20090506
  Serious: No
  Sender: FDA-Public Use
  Company Number: None

PATIENT
  Age: 48 Year
  Sex: Female
  Weight: 104.3273 kg

DRUGS (2)
  1. LEVAQUIN [Suspect]
     Indication: BRONCHITIS
     Dosage: 500MG DON'T REMEMBER PO
     Route: 048
     Dates: start: 20080730, end: 20080808
  2. LEVAQUIN [Suspect]
     Indication: UPPER RESPIRATORY TRACT INFECTION
     Dosage: 500MG DON'T REMEMBER PO
     Route: 048
     Dates: start: 20080730, end: 20080808

REACTIONS (1)
  - TENDONITIS [None]
